FAERS Safety Report 9144282 (Version 1)
Quarter: 2013Q1

REPORT INFORMATION
  Report Type: Spontaneous
  Country: US (occurrence: US)
  Receive Date: 20130306
  Receipt Date: 20130306
  Transmission Date: 20140127
  Serious: Yes (Hospitalization)
  Sender: FDA-Public Use
  Company Number: US-ASTRAZENECA-2013SE12867

PATIENT
  Age: 81 Year
  Sex: Female

DRUGS (2)
  1. TOPROL  XL [Suspect]
     Route: 048
  2. TOPROL  XL [Suspect]
     Route: 048

REACTIONS (2)
  - Blood pressure increased [Unknown]
  - Intentional drug misuse [Unknown]
